FAERS Safety Report 4975172-0 (Version None)
Quarter: 2006Q2

REPORT INFORMATION
  Report Type: 
  Country: None (occurrence: None)
  Receive Date: 20060411
  Receipt Date: 20060405
  Transmission Date: 20061013
  Serious: Yes (Other)
  Sender: FDA-Public Use
  Company Number: 2006-UK-01806UK

PATIENT
  Age: 35 Year
  Sex: Female

DRUGS (10)
  1. MORPHINE [Suspect]
  2. HUMIRA [Suspect]
     Indication: RHEUMATOID ARTHRITIS
     Dosage: 1 IN 2 WEEK
     Dates: start: 20040429, end: 20050524
  3. DIHYDROCODEINE (DIHYDROCODEINE) [Suspect]
  4. IRON (IRON) [Suspect]
  5. FLUOXETINE [Suspect]
  6. FOLIC ACID [Suspect]
  7. ALENDRONATE SODIUM [Suspect]
  8. AZATHIOPRINE [Concomitant]
  9. PREDNISOLONE [Concomitant]
  10. HRT [Concomitant]

REACTIONS (1)
  - OSTEOMYELITIS [None]
